FAERS Safety Report 8445205-8 (Version None)
Quarter: 2012Q2

REPORT INFORMATION
  Report Type: 
  Country: None (occurrence: None)
  Receive Date: 20120608
  Receipt Date: 20120601
  Transmission Date: 20120825
  Serious: Yes (Hospitalization)
  Sender: FDA-Public Use
  Company Number: DSA_57332_2012

PATIENT

DRUGS (6)
  1. XENAZINE [Suspect]
     Indication: HUNTINGTON'S DISEASE
     Dosage: (12.5 MG BID ORAL), (ORAL)
     Route: 048
     Dates: start: 20120429
  2. PAXIL CR [Concomitant]
  3. OLANZAPINE [Concomitant]
  4. BUSPAR [Concomitant]
  5. NAMENDA [Concomitant]
  6. LORAZEPAM [Concomitant]

REACTIONS (4)
  - CHOLELITHIASIS [None]
  - VOMITING [None]
  - NAUSEA [None]
  - FAECALOMA [None]
